FAERS Safety Report 4680687-9 (Version None)
Quarter: 2005Q2

REPORT INFORMATION
  Report Type: 
  Country: None (occurrence: None)
  Receive Date: 20050603
  Receipt Date: 20050512
  Transmission Date: 20051028
  Serious: Yes (Death, Other)
  Sender: FDA-Public Use
  Company Number: 2005AP02792

PATIENT
  Age: 930 Month
  Sex: Male

DRUGS (24)
  1. SEROQUEL [Suspect]
     Indication: CHOREA
     Route: 048
     Dates: start: 20050204, end: 20050217
  2. SEROQUEL [Suspect]
     Indication: DELIRIUM
     Route: 048
     Dates: start: 20050204, end: 20050217
  3. SEROQUEL [Suspect]
     Route: 048
     Dates: start: 20050218, end: 20050224
  4. SEROQUEL [Suspect]
     Route: 048
     Dates: start: 20050218, end: 20050224
  5. SEROQUEL [Suspect]
     Route: 048
     Dates: start: 20050225, end: 20050310
  6. SEROQUEL [Suspect]
     Route: 048
     Dates: start: 20050225, end: 20050310
  7. SEROQUEL [Suspect]
     Route: 048
     Dates: start: 20050311, end: 20050317
  8. SEROQUEL [Suspect]
     Route: 048
     Dates: start: 20050311, end: 20050317
  9. HARNAL [Concomitant]
     Indication: BENIGN PROSTATIC HYPERPLASIA
     Route: 048
  10. GRAMALIL [Concomitant]
     Indication: CHOREA
     Route: 048
     Dates: start: 20050121, end: 20050203
  11. GRAMALIL [Concomitant]
     Indication: DELIRIUM
     Route: 048
     Dates: start: 20050121, end: 20050203
  12. GRAMALIL [Concomitant]
     Route: 048
     Dates: start: 20050318
  13. GRAMALIL [Concomitant]
     Route: 048
     Dates: start: 20050318
  14. EURODIN [Concomitant]
     Indication: INSOMNIA
     Route: 048
     Dates: start: 20050322
  15. EURODIN [Concomitant]
     Indication: DELIRIUM
     Route: 048
     Dates: start: 20050322
  16. LENDORMIN D [Concomitant]
     Indication: INSOMNIA
     Route: 048
     Dates: start: 20050322
  17. LENDORMIN D [Concomitant]
     Indication: DELIRIUM
     Route: 048
     Dates: start: 20050322
  18. EXCEGRAN [Concomitant]
     Indication: EPILEPSY
     Route: 048
  19. DEPAKENE [Concomitant]
     Indication: EPILEPSY
     Route: 048
  20. CYANOCOBALAMIN [Concomitant]
     Indication: NEUROPATHY PERIPHERAL
     Route: 048
  21. SERENACE [Concomitant]
     Indication: CHOREA
     Route: 048
     Dates: start: 20050121, end: 20050203
  22. SERENACE [Concomitant]
     Indication: DELIRIUM
     Route: 048
     Dates: start: 20050121, end: 20050203
  23. SERENACE [Concomitant]
     Route: 048
     Dates: start: 20050318
  24. SERENACE [Concomitant]
     Route: 048
     Dates: start: 20050318

REACTIONS (3)
  - CEREBRAL INFARCTION [None]
  - DELIRIUM [None]
  - HUNTINGTON'S CHOREA [None]
